FAERS Safety Report 7482285-0 (Version None)
Quarter: 2011Q2

REPORT INFORMATION
  Report Type: 
  Country: None (occurrence: None)
  Receive Date: 20110516
  Receipt Date: 20110512
  Transmission Date: 20111010
  Serious: No
  Sender: FDA-Public Use
  Company Number: US-PFIZER INC-2011102658

PATIENT
  Sex: Female
  Weight: 49.9 kg

DRUGS (1)
  1. CELEBREX [Suspect]
     Indication: BACK PAIN
     Dosage: UNK, DAILY
     Route: 048
     Dates: start: 20050101, end: 20050101

REACTIONS (2)
  - DRUG EFFECT DELAYED [None]
  - MALAISE [None]
